FAERS Safety Report 19814557 (Version 12)
Quarter: 2023Q4

REPORT INFORMATION
  Report Type: Spontaneous
  Country: IN (occurrence: IN)
  Receive Date: 20210910
  Receipt Date: 20231020
  Transmission Date: 20240110
  Serious: Yes (Hospitalization, Other)
  Sender: FDA-Public Use
  Company Number: IN-PFIZER INC-202100986953

PATIENT
  Age: 51 Year
  Sex: Female

DRUGS (12)
  1. PALBOCICLIB [Suspect]
     Active Substance: PALBOCICLIB
     Indication: Breast cancer metastatic
     Dosage: UNK
     Dates: start: 20210325
  2. PALBOCICLIB [Suspect]
     Active Substance: PALBOCICLIB
     Dosage: 100 MG, 1X/DAY, 21 DAYS ON AND 7 DAYS OFF
     Route: 048
     Dates: start: 202103
  3. PALBOCICLIB [Suspect]
     Active Substance: PALBOCICLIB
     Dosage: 125 MG, 1X/DAY
     Route: 048
     Dates: start: 20210429, end: 20210819
  4. PALBOCICLIB [Suspect]
     Active Substance: PALBOCICLIB
     Dosage: 100 MG, 1X/DAY
     Route: 048
     Dates: start: 20210819
  5. PALBOCICLIB [Suspect]
     Active Substance: PALBOCICLIB
     Dosage: 125 MG
  6. PALBOCICLIB [Suspect]
     Active Substance: PALBOCICLIB
     Dosage: 100 MG, 1X/DAY
     Route: 048
  7. PALBOCICLIB [Suspect]
     Active Substance: PALBOCICLIB
     Dosage: 100 MG, CYCLIC (3 WEEKS ON  + 1 WEEK OFF - Q4 WEEKLY)
     Route: 048
  8. LETROZOLE [Concomitant]
     Active Substance: LETROZOLE
     Dosage: 2.5 MG, 1X/DAY (Q4 WEEKLY)
     Dates: start: 20210325
  9. ZOLEDRONIC ACID [Concomitant]
     Active Substance: ZOLEDRONIC ACID
     Dosage: 4 MG, IV IN 100 ML NS OVER 15 MINUTES (ONCE IN 3 MONTHS)
     Route: 042
  10. SUPRADYN [ASCORBIC ACID;BIOTIN;CALCIUM PANTOTHENATE;CALCIUM PHOSPHATE; [Concomitant]
     Dosage: UNK, 1X/DAY
     Route: 048
  11. CALCIUM CARBONATE\CHOLECALCIFEROL [Concomitant]
     Active Substance: CALCIUM CARBONATE\CHOLECALCIFEROL
     Dosage: 500 MG, 2X/DAY
     Route: 048
  12. ULTRACET [Concomitant]
     Active Substance: ACETAMINOPHEN\TRAMADOL HYDROCHLORIDE
     Dosage: 3X/DAY, FOR 5 DAYS
     Route: 048

REACTIONS (12)
  - Gastroenteritis [Unknown]
  - Diarrhoea [Unknown]
  - Vomiting [Unknown]
  - Bicytopenia [Unknown]
  - Myelosuppression [Unknown]
  - Diabetes mellitus [Unknown]
  - Blood thyroid stimulating hormone increased [Unknown]
  - Haemoglobin decreased [Unknown]
  - Pain [Unknown]
  - White blood cell count decreased [Unknown]
  - Neoplasm progression [Unknown]
  - Platelet count decreased [Unknown]

NARRATIVE: CASE EVENT DATE: 20210401
